FAERS Safety Report 6937670-X (Version None)
Quarter: 2010Q3

REPORT INFORMATION
  Report Type: 
  Country: None (occurrence: None)
  Receive Date: 20100820
  Receipt Date: 20100820
  Transmission Date: 20110219
  Serious: No
  Sender: FDA-Public Use
  Company Number: None

PATIENT
  Age: 57 Year
  Sex: Female
  Weight: 58.9676 kg

DRUGS (1)
  1. SUMAVEL DOSEPRO [Suspect]
     Indication: MIGRAINE
     Dosage: 6 MG/0.5 ML 1 SQ
     Route: 058
     Dates: start: 20100817, end: 20100817

REACTIONS (6)
  - CHEST DISCOMFORT [None]
  - CHEST PAIN [None]
  - JAW DISORDER [None]
  - PAIN [None]
  - PHARYNGEAL DISORDER [None]
  - SENSATION OF PRESSURE [None]
